FAERS Safety Report 18706694 (Version 2)
Quarter: 2021Q1

REPORT INFORMATION
  Report Type: Spontaneous
  Country: US (occurrence: US)
  Receive Date: 20210106
  Receipt Date: 20210112
  Transmission Date: 20210419
  Serious: Yes (Life-Threatening, Hospitalization, Other)
  Sender: FDA-Public Use
  Company Number: US-MACLEODS PHARMACEUTICALS US LTD-MAC2020029650

PATIENT

DRUGS (26)
  1. LIDOCAINE. [Suspect]
     Active Substance: LIDOCAINE
     Indication: ARRHYTHMIA PROPHYLAXIS
     Dosage: 100 MILLIGRAM
     Route: 042
  2. PHENYLEPHRINE [Concomitant]
     Active Substance: PHENYLEPHRINE HYDROCHLORIDE
     Indication: PRODUCT USED FOR UNKNOWN INDICATION
     Dosage: 1.5 MICROGRAM/KILOGRAM/MIN
     Route: 065
  3. LIDOCAINE. [Suspect]
     Active Substance: LIDOCAINE
     Dosage: 78 MILLIGRAM, SINGLE, INFUSION, 1 MG/KG OF PATIENT BODY WEIGHT
     Route: 042
  4. AMIODARONE [Concomitant]
     Active Substance: AMIODARONE
     Dosage: 1 MILLIGRAM/ MIN, INFUSION
     Route: 065
  5. ROCURONIUM [Concomitant]
     Active Substance: ROCURONIUM BROMIDE
     Indication: INDUCTION OF ANAESTHESIA
     Dosage: 50 MILLIGRAM
     Route: 065
  6. LIDOCAINE. [Suspect]
     Active Substance: LIDOCAINE
     Indication: INDUCTION OF ANAESTHESIA
     Dosage: 300 MILLIGRAM
     Route: 042
  7. VASOPRESSIN. [Concomitant]
     Active Substance: VASOPRESSIN
     Indication: PRODUCT USED FOR UNKNOWN INDICATION
     Dosage: 0.03 INTERNATIONAL UNIT/MIN
     Route: 065
  8. KETAMINE [Concomitant]
     Active Substance: KETAMINE
     Indication: PRODUCT USED FOR UNKNOWN INDICATION
     Dosage: 10 MILLIGRAM, Q.H.
     Route: 065
  9. LIDOCAINE. [Suspect]
     Active Substance: LIDOCAINE
     Dosage: 2 MILLIGRAM/MIN, INFUSION
     Route: 042
  10. AMIODARONE [Concomitant]
     Active Substance: AMIODARONE
     Dosage: 150 MILLIGRAM, BOLUS
     Route: 065
  11. DOBUTAMINE [Concomitant]
     Active Substance: DOBUTAMINE HYDROCHLORIDE
     Dosage: 6 MICROGRAM/KILOGRAM, 1 MIN
     Route: 065
  12. EPINEPHRINE. [Concomitant]
     Active Substance: EPINEPHRINE
     Indication: PRODUCT USED FOR UNKNOWN INDICATION
     Dosage: 0.04 MILLIGRAM/KILOGRAM, 1 MIN
     Route: 065
  13. LIDOCAINE. [Suspect]
     Active Substance: LIDOCAINE
     Dosage: 3 MILLIGRAM//MIN, INFUSION
     Route: 042
  14. AMIODARONE [Concomitant]
     Active Substance: AMIODARONE
     Dosage: 1 MILLIGRAM/MIN, INFUSION
     Route: 065
  15. EPOPROSTENOL. [Concomitant]
     Active Substance: EPOPROSTENOL
     Indication: PRODUCT USED FOR UNKNOWN INDICATION
     Dosage: 50 NG/KG/1 MIN
     Route: 065
  16. AMIODARONE [Concomitant]
     Active Substance: AMIODARONE
     Indication: VENTRICULAR TACHYCARDIA
     Dosage: 150 MILLIGRAM, 3 TOTAL, BOLUS THROUGHOUT POD ONE AND TWO
     Route: 065
  17. AMIODARONE [Concomitant]
     Active Substance: AMIODARONE
     Dosage: 150 MILLIGRAM, BOLUS
     Route: 065
  18. DOBUTAMINE [Concomitant]
     Active Substance: DOBUTAMINE HYDROCHLORIDE
     Indication: VENTRICULAR DYSFUNCTION
     Dosage: 7 MICROGRAM/KILOGRAM, 1 MIN
     Route: 065
  19. DEXMEDETOMIDINE. [Concomitant]
     Active Substance: DEXMEDETOMIDINE
     Indication: PRODUCT USED FOR UNKNOWN INDICATION
     Dosage: 0.7 MILLIGRAM/KILOGRAM, Q.H.
     Route: 065
  20. NOREPINEPHRINE. [Concomitant]
     Active Substance: NOREPINEPHRINE
     Indication: PRODUCT USED FOR UNKNOWN INDICATION
     Dosage: 0.4 MICROGRAM/KILOGRAM/MIN
     Route: 065
  21. LIDOCAINE. [Suspect]
     Active Substance: LIDOCAINE
     Dosage: 4 MILLIGRAM//MIN, INFUSION
     Route: 042
  22. AMIODARONE [Concomitant]
     Active Substance: AMIODARONE
     Dosage: 0.5 MILLIGRAM/MIN, INFUSION
     Route: 065
  23. AMIODARONE [Concomitant]
     Active Substance: AMIODARONE
     Dosage: 150 MILLIGRAM, BOLUS
     Route: 065
  24. EPINEPHRINE. [Concomitant]
     Active Substance: EPINEPHRINE
     Dosage: 0.06 MILLIGRAM/KILOGRAM, 1 MIN
     Route: 065
  25. FENTANYL. [Concomitant]
     Active Substance: FENTANYL
     Indication: INDUCTION OF ANAESTHESIA
     Dosage: 200 MICROGRAM
     Route: 065
  26. PROPOFOL. [Concomitant]
     Active Substance: PROPOFOL
     Indication: INDUCTION OF ANAESTHESIA
     Dosage: 50 MILLIGRAM
     Route: 065

REACTIONS (7)
  - Drug level above therapeutic [Recovered/Resolved]
  - Neurotoxicity [Recovered/Resolved]
  - Status epilepticus [Recovered/Resolved]
  - Generalised tonic-clonic seizure [Recovered/Resolved]
  - Ventricular arrhythmia [Recovered/Resolved]
  - Local anaesthetic systemic toxicity [Recovered/Resolved]
  - Respiratory acidosis [Recovered/Resolved]
